FAERS Safety Report 13679784 (Version 1)
Quarter: 2017Q2

REPORT INFORMATION
  Report Type: Spontaneous
  Country: US (occurrence: US)
  Receive Date: 20170622
  Receipt Date: 20170622
  Transmission Date: 20170830
  Serious: Yes (Other)
  Sender: FDA-Public Use
  Company Number: US-IMPAX LABORATORIES, INC-2017-IPXL-01790

PATIENT
  Sex: Male

DRUGS (1)
  1. MINOCYCLINE HYDROCHLORIDE. [Suspect]
     Active Substance: MINOCYCLINE HYDROCHLORIDE
     Indication: ROSACEA
     Dosage: 100 MG, 2 /DAY
     Route: 048

REACTIONS (6)
  - Retinal deposits [Unknown]
  - Cataract nuclear [Unknown]
  - Conjunctival pigmentation [Unknown]
  - Conjunctival deposit [Unknown]
  - Scleral pigmentation [Unknown]
  - Nail pigmentation [Unknown]
